FAERS Safety Report 11059573 (Version 1)
Quarter: 2015Q2

REPORT INFORMATION
  Report Type: Spontaneous
  Country: BR (occurrence: BR)
  Receive Date: 20150423
  Receipt Date: 20150423
  Transmission Date: 20150821
  Serious: Yes (Hospitalization)
  Sender: FDA-Public Use
  Company Number: BR-ABBVIE-15P-020-1380183-00

PATIENT
  Age: 3 Year
  Sex: Female
  Weight: 23.2 kg

DRUGS (7)
  1. PRELONE [Concomitant]
     Active Substance: PREDNISOLONE
     Route: 048
  2. PRELONE [Concomitant]
     Active Substance: PREDNISOLONE
     Route: 048
  3. PRELONE [Concomitant]
     Active Substance: PREDNISOLONE
     Route: 048
     Dates: end: 20150402
  4. PRELONE [Concomitant]
     Active Substance: PREDNISOLONE
     Indication: PRODUCT USED FOR UNKNOWN INDICATION
     Route: 042
     Dates: start: 20150323, end: 20150328
  5. KLARICID PEDIATRICO [Suspect]
     Active Substance: CLARITHROMYCIN
     Indication: SINUSITIS
     Route: 048
     Dates: start: 20150318
  6. KLARICID PEDIATRICO [Suspect]
     Active Substance: CLARITHROMYCIN
     Route: 048
  7. PRELONE [Concomitant]
     Active Substance: PREDNISOLONE
     Indication: PRODUCT USED FOR UNKNOWN INDICATION
     Route: 048
     Dates: start: 20150323

REACTIONS (3)
  - Pneumonia [Recovering/Resolving]
  - Bronchopneumonia [Recovering/Resolving]
  - Sinusitis [Not Recovered/Not Resolved]

NARRATIVE: CASE EVENT DATE: 20150323
